FAERS Safety Report 8058457-3 (Version None)
Quarter: 2012Q1

REPORT INFORMATION
  Report Type: 
  Country: None (occurrence: None)
  Receive Date: 20120119
  Receipt Date: 20120119
  Transmission Date: 20120608
  Serious: Yes (Congenital Anomaly)
  Sender: FDA-Public Use
  Company Number: None

PATIENT
  Age: 76 Year
  Sex: Female
  Weight: 65.7716 kg

DRUGS (2)
  1. TRILIPIX [Suspect]
     Dosage: 135 MG 1 AT BEDTIME MOUTH NOV. + DEC 2011
     Route: 048
     Dates: start: 20111101
  2. TRILIPIX [Suspect]
     Dosage: 135 MG 1 AT BEDTIME MOUTH NOV. + DEC 2011
     Route: 048
     Dates: start: 20111201

REACTIONS (4)
  - WEIGHT DECREASED [None]
  - MYALGIA [None]
  - DIARRHOEA [None]
  - NAUSEA [None]
